FAERS Safety Report 11306566 (Version 2)
Quarter: 2015Q3

REPORT INFORMATION
  Report Type: Report from Study
  Country: US (occurrence: US)
  Receive Date: 20150723
  Receipt Date: 20150810
  Transmission Date: 20151125
  Serious: Yes (Death, Hospitalization)
  Sender: FDA-Public Use
  Company Number: US-MALLINCKRODT-T201503434

PATIENT
  Age: 65 Year
  Sex: Male

DRUGS (3)
  1. REPOSITORY CORTICOTROPIN INJECTION [Suspect]
     Active Substance: CORTICOTROPIN
     Indication: POLYMYOSITIS
     Dosage: 80 UNITS, TWICE WKLY FOR 10 WKS
     Route: 058
     Dates: end: 201506
  2. REPOSITORY CORTICOTROPIN INJECTION [Suspect]
     Active Substance: CORTICOTROPIN
     Indication: DERMATOMYOSITIS
  3. REPOSITORY CORTICOTROPIN INJECTION [Suspect]
     Active Substance: CORTICOTROPIN
     Indication: RHEUMATOID ARTHRITIS

REACTIONS (1)
  - Lung disorder [Fatal]

NARRATIVE: CASE EVENT DATE: 201506
